FAERS Safety Report 4347022-7 (Version None)
Quarter: 2004Q1

REPORT INFORMATION
  Report Type: 
  Country: None (occurrence: None)
  Receive Date: 20040329
  Receipt Date: 20040213
  Transmission Date: 20041129
  Serious: No
  Sender: FDA-Public Use
  Company Number: USA040259389

PATIENT
  Age: 12 Year
  Sex: Male
  Weight: 33 kg

DRUGS (2)
  1. STRATTERA [Suspect]
     Indication: ATTENTION DEFICIT/HYPERACTIVITY DISORDER
     Dosage: 18 MG/DAY
  2. TENEX [Concomitant]

REACTIONS (3)
  - ABNORMAL BEHAVIOUR [None]
  - FATIGUE [None]
  - GRIMACING [None]
